APPROVED DRUG PRODUCT: EQUANIL
Active Ingredient: MEPROBAMATE
Strength: 200MG
Dosage Form/Route: TABLET;ORAL
Application: N010028 | Product #005
Applicant: WYETH AYERST LABORATORIES
Approved: Approved Prior to Jan 1, 1982 | RLD: No | RS: No | Type: DISCN